FAERS Safety Report 7707964-9 (Version None)
Quarter: 2011Q3

REPORT INFORMATION
  Report Type: 
  Country: None (occurrence: None)
  Receive Date: 20110824
  Receipt Date: 20101028
  Transmission Date: 20111222
  Serious: Yes (Hospitalization)
  Sender: FDA-Public Use
  Company Number: PHHY2011TR72127

PATIENT
  Age: 5 Hour
  Weight: 3.5 kg

DRUGS (2)
  1. METHERGINE [Suspect]
     Dosage: 0.2 MG, UNK
     Route: 030
  2. VITAMIN K TAB [Suspect]

REACTIONS (4)
  - CYANOSIS [None]
  - WRONG DRUG ADMINISTERED [None]
  - HYPOXIA [None]
  - CLONIC CONVULSION [None]
